FAERS Safety Report 8333615-9 (Version None)
Quarter: 2012Q2

REPORT INFORMATION
  Report Type: 
  Country: None (occurrence: None)
  Receive Date: 20120503
  Receipt Date: 20101206
  Transmission Date: 20120825
  Serious: No
  Sender: FDA-Public Use
  Company Number: US-TEVA-2010006328

PATIENT
  Age: 26 Year
  Sex: Female

DRUGS (2)
  1. NUVIGIL [Suspect]
     Indication: NARCOLEPSY
  2. NUVIGIL [Suspect]
     Indication: DEPRESSION

REACTIONS (1)
  - ALOPECIA [None]
